FAERS Safety Report 17757797 (Version 1)
Quarter: 2020Q2

REPORT INFORMATION
  Report Type: Spontaneous
  Country: US (occurrence: US)
  Receive Date: 20200507
  Receipt Date: 20200507
  Transmission Date: 20200714
  Serious: Yes (Death)
  Sender: FDA-Public Use
  Company Number: US-EPIC PHARMA LLC-2020EPC00159

PATIENT
  Age: 35 Year
  Sex: Female

DRUGS (3)
  1. METHADONE [Suspect]
     Active Substance: METHADONE HYDROCHLORIDE
     Dosage: UKN
  2. OXYMORPHONE [Suspect]
     Active Substance: OXYMORPHONE
     Dosage: UKN
  3. OXYCODONE [Suspect]
     Active Substance: OXYCODONE
     Dosage: UKN

REACTIONS (1)
  - Toxicity to various agents [Fatal]

NARRATIVE: CASE EVENT DATE: 20111105
